FAERS Safety Report 5190900-X (Version None)
Quarter: 2006Q4

REPORT INFORMATION
  Report Type: 
  Country: None (occurrence: None)
  Receive Date: 20061222
  Receipt Date: 20060925
  Transmission Date: 20070319
  Serious: Yes (Hospitalization)
  Sender: FDA-Public Use
  Company Number: US-ELI_LILLY_AND_COMPANY-US200609007450

PATIENT
  Age: 45 Year
  Sex: Male
  Weight: 95.238 kg

DRUGS (7)
  1. ARIPIPRAZOLE [Concomitant]
     Dates: start: 20010101
  2. CLOZAPINE [Concomitant]
     Dates: start: 19930101
  3. DOXEPIN HCL [Concomitant]
     Dates: start: 20040101
  4. PAROXETINE HCL [Concomitant]
     Dates: start: 19930101, end: 20000101
  5. TRAZODONE HCL [Concomitant]
     Dates: start: 20000101
  6. ATENOLOL [Concomitant]
     Dates: start: 20031201
  7. ZYPREXA [Suspect]
     Indication: SCHIZOPHRENIA, PARANOID TYPE
     Dosage: 20 MG, UNK
     Route: 065
     Dates: start: 19980401, end: 20040701

REACTIONS (2)
  - DIABETES MELLITUS [None]
  - MYOCARDIAL INFARCTION [None]
